FAERS Safety Report 19278552 (Version 4)
Quarter: 2021Q3

REPORT INFORMATION
  Report Type: Report from Study
  Country: CO (occurrence: CO)
  Receive Date: 20210520
  Receipt Date: 20210712
  Transmission Date: 20211014
  Serious: No
  Sender: FDA-Public Use
  Company Number: NVSC2021CO106365

PATIENT
  Sex: Female
  Weight: 71 kg

DRUGS (2)
  1. REVOLADE [Suspect]
     Active Substance: ELTROMBOPAG OLAMINE
     Dosage: 50 MG, QD (2 TABLETS OF 25 MG)
     Route: 048
     Dates: start: 20210412
  2. REVOLADE [Suspect]
     Active Substance: ELTROMBOPAG OLAMINE
     Indication: IMMUNE THROMBOCYTOPENIA
     Dosage: UNK UNK, QD
     Route: 048

REACTIONS (7)
  - Eye pain [Unknown]
  - Vomiting [Unknown]
  - Malaise [Unknown]
  - Headache [Recovered/Resolved]
  - Product dose omission issue [Unknown]
  - Pain [Unknown]
  - Nausea [Recovered/Resolved]
